FAERS Safety Report 26122998 (Version 1)
Quarter: 2025Q4

REPORT INFORMATION
  Report Type: Spontaneous
  Country: EU (occurrence: EU)
  Receive Date: 20251204
  Receipt Date: 20251204
  Transmission Date: 20260118
  Serious: Yes (Hospitalization, Other)
  Sender: PFIZER
  Company Number: EU-Desitin-2025-02823

PATIENT
  Age: 34 Year
  Sex: Male

DRUGS (21)
  1. LORAZEPAM [Suspect]
     Active Substance: LORAZEPAM
     Indication: Epilepsy
     Dosage: 1 MG, AS NEEDED
     Route: 042
  2. LORAZEPAM [Suspect]
     Active Substance: LORAZEPAM
     Indication: Generalised tonic-clonic seizure
     Dosage: 2.5 MG, AS NEEDED
  3. LORAZEPAM [Suspect]
     Active Substance: LORAZEPAM
     Dosage: 3 MG, AS NEEDED
     Route: 042
  4. LORAZEPAM [Suspect]
     Active Substance: LORAZEPAM
     Dosage: 2 MG, AS NEEDED
     Route: 042
  5. VALPROATE [Suspect]
     Active Substance: VALPROIC ACID
     Indication: Epilepsy
     Dosage: 1750 MG, 1X/DAY
  6. VALPROATE [Suspect]
     Active Substance: VALPROIC ACID
     Indication: Generalised tonic-clonic seizure
     Dosage: 1300 MG, DAILY(500 - 0 - 800 MG)
  7. LACOSAMIDE [Suspect]
     Active Substance: LACOSAMIDE
     Indication: Epilepsy
     Dosage: 300 MG, 1X/DAY
  8. LACOSAMIDE [Suspect]
     Active Substance: LACOSAMIDE
     Indication: Generalised tonic-clonic seizure
  9. ETHOSUXIMIDE [Suspect]
     Active Substance: ETHOSUXIMIDE
     Indication: Epilepsy
     Dosage: UNK
  10. ETHOSUXIMIDE [Suspect]
     Active Substance: ETHOSUXIMIDE
     Indication: Generalised tonic-clonic seizure
  11. CLOBAZAM [Suspect]
     Active Substance: CLOBAZAM
     Indication: Generalised tonic-clonic seizure
     Dosage: UNK
  12. CLOBAZAM [Suspect]
     Active Substance: CLOBAZAM
     Indication: Epilepsy
  13. MIDAZOLAM [Suspect]
     Active Substance: MIDAZOLAM
     Indication: Generalised tonic-clonic seizure
     Dosage: 10 MG, AS NEEDED
     Route: 002
  14. BROMINE [Suspect]
     Active Substance: BROMINE
     Indication: Epilepsy
     Dosage: UNK
  15. CENOBAMATE [Suspect]
     Active Substance: CENOBAMATE
     Indication: Epilepsy
     Dosage: UNK
  16. CENOBAMATE [Suspect]
     Active Substance: CENOBAMATE
     Indication: Generalised tonic-clonic seizure
  17. LAMOTRIGINE [Concomitant]
     Active Substance: LAMOTRIGINE
     Indication: Epilepsy
     Dosage: 350 MG, 1X/DAY
  18. LAMOTRIGINE [Concomitant]
     Active Substance: LAMOTRIGINE
     Indication: Generalised tonic-clonic seizure
     Dosage: 200 MG, 2X/DAY
  19. LEVETIRACETAM [Concomitant]
     Active Substance: LEVETIRACETAM
     Indication: Generalised tonic-clonic seizure
     Dosage: 1000 MG, AS NEEDED
     Route: 042
  20. LEVETIRACETAM [Concomitant]
     Active Substance: LEVETIRACETAM
     Dosage: 2000 MG, AS NEEDED
     Route: 042
  21. PROPOFOL [Concomitant]
     Active Substance: PROPOFOL
     Indication: Sedation
     Dosage: UNK

REACTIONS (11)
  - Epilepsy [Unknown]
  - Condition aggravated [Unknown]
  - Drug intolerance [Unknown]
  - Drug ineffective [Unknown]
  - Thrombocytopenia [Unknown]
  - Status epilepticus [Unknown]
  - Myoclonic epilepsy [Unknown]
  - Myelosuppression [Unknown]
  - Gastrointestinal disorder [Unknown]
  - Anaemia [Unknown]
  - Off label use [Unknown]
